FAERS Safety Report 5666777-2 (Version None)
Quarter: 2008Q1

REPORT INFORMATION
  Report Type: 
  Country: None (occurrence: None)
  Receive Date: 20080315
  Receipt Date: 20080201
  Transmission Date: 20080703
  Serious: No
  Sender: FDA-Public Use
  Company Number: PR-ABBOTT-08P-131-0437426-00

PATIENT
  Age: 37 Year
  Sex: Female

DRUGS (8)
  1. HUMIRA [Suspect]
     Indication: RHEUMATOID ARTHRITIS
     Route: 058
     Dates: start: 20070901, end: 20071101
  2. HUMIRA [Suspect]
     Route: 058
     Dates: start: 20071201
  3. METHOTREXATE [Concomitant]
     Indication: ARTHRITIS
     Route: 030
  4. METHYLPREDNISOLONE [Concomitant]
     Indication: ARTHRITIS
     Route: 048
  5. ESOMEPRAZOLE MAGNESIUM [Concomitant]
     Indication: DRUG USE FOR UNKNOWN INDICATION
     Route: 048
  6. ULTRACEPT [Concomitant]
     Indication: PAIN
     Route: 048
  7. TRAMADOL HCL [Concomitant]
     Indication: PAIN
     Route: 048
  8. PARACETAMOL [Concomitant]
     Indication: PAIN
     Route: 048

REACTIONS (6)
  - ACUTE FEBRILE NEUTROPHILIC DERMATOSIS [None]
  - DERMATOMYOSITIS [None]
  - HAEMATOMA [None]
  - HELICOBACTER INFECTION [None]
  - SKIN LESION [None]
  - SUBCUTANEOUS NODULE [None]
